FAERS Safety Report 12067046 (Version 1)
Quarter: 2016Q1

REPORT INFORMATION
  Report Type: Spontaneous
  Country: US (occurrence: US)
  Receive Date: 20160211
  Receipt Date: 20160211
  Transmission Date: 20160526
  Serious: No
  Sender: FDA-Public Use
  Company Number: US-BAYER-2016-020407

PATIENT
  Age: 81 Year
  Sex: Female
  Weight: 81.63 kg

DRUGS (6)
  1. ALEVE [Suspect]
     Active Substance: NAPROXEN SODIUM
     Indication: ARTHRITIS
     Dosage: 2 DF, UNK
  2. ALEVE [Suspect]
     Active Substance: NAPROXEN SODIUM
     Indication: ARTHRITIS
     Dosage: 1 DF, QD
     Route: 048
  3. GINKGO BILOBA [Concomitant]
     Active Substance: GINKGO
  4. IRON [FERROUS SULFATE] [Concomitant]
  5. VITAMIN E [Concomitant]
     Active Substance: .ALPHA.-TOCOPHEROL
  6. GINSENG [GINSENG NOS] [Concomitant]
     Active Substance: ASIAN GINSENG

REACTIONS (1)
  - Product use issue [None]
